FAERS Safety Report 23985065 (Version 3)
Quarter: 2024Q3

REPORT INFORMATION
  Report Type: Spontaneous
  Country: US (occurrence: US)
  Receive Date: 20240618
  Receipt Date: 20240822
  Transmission Date: 20241016
  Serious: No
  Sender: CALLIDITAS THERAPEUTICS
  Company Number: US-Calliditas-2024CAL01019

PATIENT
  Age: 73 Year
  Sex: Male
  Weight: 96.6 kg

DRUGS (2)
  1. TARPEYO [Suspect]
     Active Substance: BUDESONIDE
     Indication: IgA nephropathy
     Route: 048
     Dates: start: 20240315
  2. AMLODIPINE BESYLATE [Concomitant]
     Active Substance: AMLODIPINE BESYLATE

REACTIONS (5)
  - Peripheral swelling [Unknown]
  - Blood pressure increased [Unknown]
  - Product dose omission issue [Recovered/Resolved]
  - Weight decreased [Recovered/Resolved]
  - Haemorrhage [Unknown]
